FAERS Safety Report 8561435-9 (Version None)
Quarter: 2012Q3

REPORT INFORMATION
  Report Type: 
  Country: None (occurrence: None)
  Receive Date: 20120802
  Receipt Date: 20120723
  Transmission Date: 20120928
  Serious: Yes (Other)
  Sender: FDA-Public Use
  Company Number: JP-GLAXOSMITHKLINE-B0808366A

PATIENT
  Sex: Male

DRUGS (7)
  1. FLUTICASONE PROPIONATE/SALMETEROL [Suspect]
     Indication: ASTHMA
     Dosage: 200MCG PER DAY
     Route: 055
     Dates: start: 20111024, end: 20120501
  2. MEDICON [Concomitant]
     Indication: UPPER RESPIRATORY TRACT INFLAMMATION
     Dosage: 45MG THREE TIMES PER DAY
     Route: 048
     Dates: start: 20111024, end: 20111031
  3. ALBUTEROL SULFATE [Suspect]
     Indication: ASTHMA
     Route: 055
     Dates: start: 20120213
  4. L-CARBOCYSTEINE [Concomitant]
     Indication: PRODUCTIVE COUGH
     Dosage: 750MG THREE TIMES PER DAY
     Route: 048
     Dates: start: 20111024, end: 20111031
  5. CLARITHROMYCIN [Concomitant]
     Indication: UPPER RESPIRATORY TRACT INFLAMMATION
     Dosage: 400MG TWICE PER DAY
     Route: 048
     Dates: start: 20120213, end: 20120217
  6. MONTELUKAST SODIUM [Concomitant]
     Indication: ASTHMA
     Dosage: 10MG PER DAY
     Route: 048
     Dates: start: 20111024
  7. MEDICON [Concomitant]
     Dosage: 45MG THREE TIMES PER DAY
     Route: 048
     Dates: start: 20120213, end: 20120217

REACTIONS (3)
  - VISUAL ACUITY REDUCED [None]
  - CATARACT [None]
  - MYOPIA [None]
